FAERS Safety Report 20053655 (Version 2)
Quarter: 2022Q1

REPORT INFORMATION
  Report Type: Report from Study
  Country: KR (occurrence: None)
  Receive Date: 20211110
  Receipt Date: 20220201
  Transmission Date: 20220423
  Serious: Yes (Other)
  Sender: FDA-Public Use
  Company Number: KR-ROCHE-2542865

PATIENT
  Age: 67 Year
  Sex: Female
  Weight: 59.9 kg

DRUGS (38)
  1. FARICIMAB [Suspect]
     Active Substance: FARICIMAB
     Indication: Neovascular age-related macular degeneration
     Dosage: MOST RECENT DOSE OF BLINDED RO6867461 AND/ OR BLINDED AFLIBERCEPT PRIOR TO AE ONSET ON 30/DEC/2019 A
     Route: 050
     Dates: start: 20191010
  2. PLACEBO [Suspect]
     Active Substance: UNSPECIFIED INGREDIENT
     Indication: Neovascular age-related macular degeneration
     Dosage: MOST RECENT DOSE OF BLINDED RO6867461 AND/ OR BLINDED AFLIBERCEPT PRIOR TO AE ONSET ON 30/DEC/2019 A
     Route: 050
     Dates: start: 20191010
  3. RANIBIZUMAB [Suspect]
     Active Substance: RANIBIZUMAB
     Indication: Neovascular age-related macular degeneration
     Route: 065
     Dates: start: 20200720
  4. COVID-19 VACCINE [Concomitant]
     Indication: Prophylaxis
     Route: 030
     Dates: start: 20210812, end: 20210812
  5. COVID-19 VACCINE [Concomitant]
     Indication: COVID-19
  6. AMLODIPINE CAMSYLATE [Concomitant]
     Active Substance: AMLODIPINE CAMSYLATE
     Indication: Hypertension
     Route: 048
  7. GLIMERON [Concomitant]
     Indication: Diabetes mellitus
     Route: 048
  8. IPRAGLIFLOZIN L-PROLINE [Concomitant]
     Active Substance: IPRAGLIFLOZIN L-PROLINE
     Indication: Diabetes mellitus
     Route: 048
  9. EZETIMIBE\ROSUVASTATIN [Concomitant]
     Active Substance: EZETIMIBE\ROSUVASTATIN
     Indication: Hyperlipidaemia
     Route: 048
  10. SYNTHROID [Concomitant]
     Active Substance: LEVOTHYROXINE SODIUM
     Indication: Hyperlipidaemia
     Route: 048
  11. SYNTHROID [Concomitant]
     Active Substance: LEVOTHYROXINE SODIUM
     Indication: Hypothyroidism
  12. CAVID [Concomitant]
     Indication: Calcium deficiency
     Route: 048
  13. DOXYCYCLINE [Concomitant]
     Active Substance: DOXYCYCLINE
     Indication: Herpes simplex
     Route: 048
     Dates: start: 20200214, end: 20200227
  14. DOXYCYCLINE [Concomitant]
     Active Substance: DOXYCYCLINE
     Route: 048
     Dates: start: 20200617, end: 20200630
  15. DERMATOP [Concomitant]
     Active Substance: PREDNICARBATE
     Indication: Herpes simplex
     Route: 061
     Dates: start: 20200214, end: 20200227
  16. DERMATOP [Concomitant]
     Active Substance: PREDNICARBATE
     Route: 061
     Dates: start: 20201207, end: 20210107
  17. LAFUTIDINE [Concomitant]
     Active Substance: LAFUTIDINE
     Indication: Herpes simplex
     Route: 048
     Dates: start: 20200214, end: 20200227
  18. LAFUTIDINE [Concomitant]
     Active Substance: LAFUTIDINE
     Route: 048
     Dates: start: 20200617, end: 20200630
  19. LUCENTIS [Concomitant]
     Active Substance: RANIBIZUMAB
     Indication: Neovascular age-related macular degeneration
     Route: 050
     Dates: start: 20200302, end: 20200302
  20. LUCENTIS [Concomitant]
     Active Substance: RANIBIZUMAB
     Route: 050
     Dates: start: 20200406, end: 20200406
  21. LUCENTIS [Concomitant]
     Active Substance: RANIBIZUMAB
     Route: 050
     Dates: start: 20200508, end: 20200508
  22. LUCENTIS [Concomitant]
     Active Substance: RANIBIZUMAB
     Route: 050
     Dates: start: 20200710, end: 20200710
  23. LUCENTIS [Concomitant]
     Active Substance: RANIBIZUMAB
     Route: 050
     Dates: start: 20200909, end: 20200909
  24. LUCENTIS [Concomitant]
     Active Substance: RANIBIZUMAB
     Route: 050
     Dates: start: 20210222, end: 20210222
  25. LEVOFLOXACIN [Concomitant]
     Active Substance: LEVOFLOXACIN
     Route: 047
     Dates: start: 20200302, end: 20200306
  26. LEVOFLOXACIN [Concomitant]
     Active Substance: LEVOFLOXACIN
     Route: 047
     Dates: start: 20200406, end: 20200410
  27. LEVOFLOXACIN [Concomitant]
     Active Substance: LEVOFLOXACIN
     Route: 047
     Dates: start: 20200508, end: 20200512
  28. LEVOFLOXACIN [Concomitant]
     Active Substance: LEVOFLOXACIN
     Route: 047
     Dates: start: 20200710, end: 20200714
  29. LEVOFLOXACIN [Concomitant]
     Active Substance: LEVOFLOXACIN
     Route: 047
     Dates: start: 20200909, end: 20200913
  30. LEVOFLOXACIN [Concomitant]
     Active Substance: LEVOFLOXACIN
     Route: 047
     Dates: start: 20201109, end: 20201113
  31. ACLOVA [Concomitant]
     Indication: Herpes simplex
     Route: 048
     Dates: start: 20191230, end: 20200103
  32. MENOVA [Concomitant]
     Indication: Herpes simplex
     Dates: start: 20191230, end: 20200103
  33. ESPERSON [Concomitant]
     Indication: Herpes simplex
     Route: 061
     Dates: start: 20200617, end: 20200630
  34. ROZEX (METRONIDAZOLE) [Concomitant]
     Active Substance: METRONIDAZOLE
     Indication: Herpes simplex
     Route: 061
     Dates: start: 20200617, end: 20200630
  35. AVASTIN [Concomitant]
     Active Substance: BEVACIZUMAB
     Indication: Neovascular age-related macular degeneration
     Route: 050
     Dates: start: 20201109, end: 20201109
  36. LUCENTIS [Concomitant]
     Active Substance: RANIBIZUMAB
     Indication: Neovascular age-related macular degeneration
     Route: 050
     Dates: start: 20210809, end: 20210809
  37. LUCENTIS [Concomitant]
     Active Substance: RANIBIZUMAB
     Route: 050
     Dates: start: 20210906, end: 20210906
  38. LUCENTIS [Concomitant]
     Active Substance: RANIBIZUMAB
     Route: 047
     Dates: start: 20211101, end: 20211101

REACTIONS (1)
  - Retinal pigment epithelial tear [Not Recovered/Not Resolved]

NARRATIVE: CASE EVENT DATE: 20191230
